FAERS Safety Report 9683113 (Version 1)
Quarter: 2013Q4

REPORT INFORMATION
  Report Type: Spontaneous
  Country: US (occurrence: None)
  Receive Date: 20131111
  Receipt Date: 20131111
  Transmission Date: 20140711
  Serious: No
  Sender: FDA-Public Use
  Company Number: None

PATIENT
  Age: 16 Year
  Sex: Male
  Weight: 99.2 kg

DRUGS (1)
  1. VYVANSE 50 MG SHIRE [Suspect]
     Indication: ATTENTION DEFICIT/HYPERACTIVITY DISORDER
     Dosage: Q AM
     Route: 048
     Dates: start: 20131004, end: 20131108

REACTIONS (3)
  - Tachycardia [None]
  - Hyperhidrosis [None]
  - Product quality issue [None]
